FAERS Safety Report 7804026-7 (Version None)
Quarter: 2011Q4

REPORT INFORMATION
  Report Type: 
  Country: None (occurrence: None)
  Receive Date: 20111010
  Receipt Date: 20110928
  Transmission Date: 20120403
  Serious: Yes (Other)
  Sender: FDA-Public Use
  Company Number: US-JNJFOC-20111002045

PATIENT
  Sex: Female
  Weight: 62.14 kg

DRUGS (2)
  1. TOPAMAX [Suspect]
     Indication: EPILEPSY
     Route: 048
     Dates: start: 20050101
  2. TOPAMAX [Suspect]
     Indication: CONVULSION
     Route: 048
     Dates: start: 20050101

REACTIONS (3)
  - ABNORMAL SENSATION IN EYE [None]
  - ASTHENOPIA [None]
  - RETINAL DISORDER [None]
